FAERS Safety Report 4285875-1 (Version None)
Quarter: 2004Q1

REPORT INFORMATION
  Report Type: 
  Country: None (occurrence: None)
  Receive Date: 20040204
  Receipt Date: 20040204
  Transmission Date: 20041129
  Serious: No
  Sender: FDA-Public Use
  Company Number: None

PATIENT
  Age: 57 Year
  Sex: Male

DRUGS (2)
  1. ENBREL [Suspect]
  2. ARAVA [Suspect]

REACTIONS (2)
  - ARTHRITIS BACTERIAL [None]
  - PNEUMOCOCCAL SEPSIS [None]
